FAERS Safety Report 5007806-9 (Version None)
Quarter: 2006Q2

REPORT INFORMATION
  Report Type: 
  Country: None (occurrence: None)
  Receive Date: 20060522
  Receipt Date: 20060509
  Transmission Date: 20061013
  Serious: Yes (Other)
  Sender: FDA-Public Use
  Company Number: DE-GLAXOSMITHKLINE-D0049671A

PATIENT
  Age: 52 Year
  Sex: Male
  Weight: 66 kg

DRUGS (5)
  1. LAMICTAL [Suspect]
     Indication: SCHIZOAFFECTIVE DISORDER
     Dosage: 100MG PER DAY
     Route: 048
     Dates: start: 20050610
  2. TAVOR [Concomitant]
     Indication: PSYCHOTIC DISORDER
     Dosage: 3MG PER DAY
     Route: 048
  3. PARKOPAN [Concomitant]
     Indication: PSYCHOTIC DISORDER
     Dosage: 4MG PER DAY
     Route: 048
  4. BUSCOPAN [Concomitant]
     Indication: ABDOMINAL SYMPTOM
     Dosage: 20MG PER DAY
     Route: 048
  5. BENPERIDOL [Concomitant]
     Indication: PSYCHOTIC DISORDER
     Dosage: 3MG PER DAY
     Route: 048

REACTIONS (1)
  - TRANSITIONAL CELL CARCINOMA [None]
